FAERS Safety Report 9611552 (Version 2)
Quarter: 2013Q4

REPORT INFORMATION
  Report Type: Spontaneous
  Country: JP (occurrence: JP)
  Receive Date: 20131010
  Receipt Date: 20131205
  Transmission Date: 20140711
  Serious: Yes (Hospitalization)
  Sender: FDA-Public Use
  Company Number: JP-TAKEDA-2013TEU000735

PATIENT
  Age: 69 Year
  Sex: Female

DRUGS (10)
  1. TACHOSIL [Suspect]
     Indication: HAEMORRHAGE PROPHYLAXIS
     Dosage: ONE SHEET OF REGULAR-SIZE AND 2 SHEETS OF HALF-SIZE
     Dates: start: 20130702
  2. LIVALO [Concomitant]
     Indication: HYPERLIPIDAEMIA
     Dosage: 1 MG, QD
     Route: 048
  3. MICARDIS [Concomitant]
     Indication: HYPERTENSION
     Dosage: 20 MG, QD
     Route: 048
  4. PARIET [Concomitant]
     Indication: GASTRITIS
     Dosage: 10 MG, QD
     Route: 048
  5. MAGNESIUM OXIDE [Concomitant]
     Indication: CONSTIPATION
     Dosage: 3 G, TID
     Route: 048
  6. PLACODE [Concomitant]
     Indication: BRONCHITIS CHRONIC
     Dosage: 3 ML, QD
     Route: 048
  7. RHYTHMY [Concomitant]
     Indication: INSOMNIA
     Dosage: 1 MG, QD
     Route: 048
  8. PLASMA, FRESH FROZEN [Concomitant]
  9. PLATELETS, CONCENTRATED [Concomitant]
  10. RED BLOOD CELLS, CONCENTRATED [Concomitant]

REACTIONS (2)
  - Postoperative wound infection [Recovered/Resolved]
  - Pyrexia [Recovered/Resolved]
